FAERS Safety Report 25386075 (Version 1)
Quarter: 2025Q2

REPORT INFORMATION
  Report Type: Spontaneous
  Country: US (occurrence: None)
  Receive Date: 20250531
  Receipt Date: 20250531
  Transmission Date: 20250717
  Serious: No
  Sender: FDA-CTU
  Company Number: None

PATIENT
  Age: 55 Year
  Sex: Female
  Weight: 96.75 kg

DRUGS (11)
  1. ZAVZPRET [Suspect]
     Active Substance: ZAVEGEPANT HYDROCHLORIDE
     Indication: Migraine
     Dosage: OTHER QUANTITY : 1 NASAL SPRAY DEVICE;?FREQUENCY : DAILY;?OTHER ROUTE : ONE SPRAY IN NOSTRIL;?
     Route: 045
     Dates: start: 20250529, end: 20250529
  2. VYVANSE [Concomitant]
     Active Substance: LISDEXAMFETAMINE DIMESYLATE
  3. ALBUTEROL [Concomitant]
     Active Substance: ALBUTEROL
  4. - Zyrtec [Concomitant]
  5. NURTEC ODT [Concomitant]
     Active Substance: RIMEGEPANT SULFATE
  6. TYLENOL [Concomitant]
     Active Substance: ACETAMINOPHEN
  7. Bariatric Multi-Vitamin [Concomitant]
  8. -Magnesium Glycinate [Concomitant]
  9. Ashwaghanda [Concomitant]
  10. NM-6603 [Concomitant]
     Active Substance: NM-6603
  11. SUDAFED [Concomitant]
     Active Substance: PSEUDOEPHEDRINE HYDROCHLORIDE

REACTIONS (10)
  - Somnolence [None]
  - Throat irritation [None]
  - Taste disorder [None]
  - Headache [None]
  - Neck pain [None]
  - Nausea [None]
  - Photophobia [None]
  - Feeling abnormal [None]
  - Oropharyngeal pain [None]
  - Brain fog [None]

NARRATIVE: CASE EVENT DATE: 20250529
